FAERS Safety Report 6286668-6 (Version None)
Quarter: 2009Q3

REPORT INFORMATION
  Report Type: 
  Country: None (occurrence: None)
  Receive Date: 20090728
  Receipt Date: 20090717
  Transmission Date: 20100115
  Serious: Yes (Other)
  Sender: FDA-Public Use
  Company Number: PHEH2009US06713

PATIENT
  Sex: Female

DRUGS (1)
  1. GLEEVEC [Suspect]
     Dosage: 200 MG, QD
     Route: 048

REACTIONS (5)
  - ABDOMINAL PAIN [None]
  - CLOSTRIDIUM DIFFICILE COLITIS [None]
  - DECREASED APPETITE [None]
  - DIARRHOEA [None]
  - VOMITING [None]
